FAERS Safety Report 5855783-0 (Version None)
Quarter: 2008Q3

REPORT INFORMATION
  Report Type: 
  Country: None (occurrence: None)
  Receive Date: 20080825
  Receipt Date: 20070703
  Transmission Date: 20090109
  Serious: No
  Sender: FDA-Public Use
  Company Number: US-KINGPHARMUSA00001-K200700985

PATIENT

DRUGS (1)
  1. SEPTRA [Suspect]
     Indication: SKIN INFECTION
     Route: 048
     Dates: start: 20070101, end: 20070101

REACTIONS (1)
  - DRUG SCREEN FALSE POSITIVE [None]
